FAERS Safety Report 8035556-3 (Version None)
Quarter: 2012Q1

REPORT INFORMATION
  Report Type: 
  Country: None (occurrence: None)
  Receive Date: 20120111
  Receipt Date: 20120106
  Transmission Date: 20120608
  Serious: Yes (Hospitalization)
  Sender: FDA-Public Use
  Company Number: JP-JNJFOC-20110407625

PATIENT
  Sex: Male
  Weight: 57 kg

DRUGS (32)
  1. NEO VITACAIN [Concomitant]
     Route: 065
     Dates: start: 20100721, end: 20100721
  2. SIGMART [Concomitant]
     Route: 048
     Dates: start: 20100805
  3. GASTROM [Concomitant]
     Route: 048
     Dates: start: 20101119, end: 20101201
  4. BUFFERIN [Suspect]
     Indication: ANGINA PECTORIS
     Route: 048
     Dates: start: 20100802, end: 20101118
  5. LOXONIN [Concomitant]
     Indication: PAIN
     Route: 048
  6. TIZANIDINE HCL [Concomitant]
     Indication: PAIN
     Route: 048
  7. TORSEMIDE [Concomitant]
     Indication: PRODUCT USED FOR UNKNOWN INDICATION
     Route: 048
  8. DESYREL [Concomitant]
     Indication: PRODUCT USED FOR UNKNOWN INDICATION
     Route: 048
  9. CEROCRAL [Concomitant]
     Indication: PRODUCT USED FOR UNKNOWN INDICATION
     Route: 048
  10. FENTANYL-100 [Suspect]
     Indication: PAIN
     Dosage: PER 3 DAYS
     Route: 062
     Dates: start: 20100519
  11. NEO VITACAIN [Concomitant]
     Indication: PAIN
     Route: 065
     Dates: start: 20100804, end: 20100804
  12. NEUROTROPIN [Concomitant]
     Route: 065
     Dates: start: 20100519, end: 20100519
  13. INDOMETHACIN [Concomitant]
     Indication: PAIN
     Route: 065
  14. METHYCOBAL [Concomitant]
     Indication: PRODUCT USED FOR UNKNOWN INDICATION
     Route: 048
  15. NITROGLYCERIN [Concomitant]
     Indication: PRODUCT USED FOR UNKNOWN INDICATION
     Route: 060
     Dates: start: 20100802, end: 20100802
  16. NEO VITACAIN [Concomitant]
     Route: 065
     Dates: start: 20100519, end: 20100519
  17. NEUROTROPIN [Concomitant]
     Route: 065
     Dates: start: 20100804, end: 20100804
  18. URIEF [Concomitant]
     Indication: PRODUCT USED FOR UNKNOWN INDICATION
     Route: 048
  19. SIGMART [Concomitant]
     Indication: PRODUCT USED FOR UNKNOWN INDICATION
     Route: 048
     Dates: start: 20100802, end: 20100804
  20. ISOSORBIDE DINITRATE [Concomitant]
     Indication: PRODUCT USED FOR UNKNOWN INDICATION
     Route: 061
     Dates: start: 20100802
  21. NEUROTROPIN [Concomitant]
     Indication: PAIN
     Route: 065
     Dates: start: 20100616, end: 20100616
  22. NEUROTROPIN [Concomitant]
     Route: 065
     Dates: start: 20100707, end: 20100707
  23. NEUROTROPIN [Concomitant]
     Route: 065
     Dates: start: 20100721, end: 20100721
  24. SENNOSIDE [Concomitant]
     Indication: PRODUCT USED FOR UNKNOWN INDICATION
     Route: 048
  25. PANTOSIN [Concomitant]
     Indication: PRODUCT USED FOR UNKNOWN INDICATION
     Route: 048
  26. RABEPRAZOLE SODIUM [Concomitant]
     Route: 048
     Dates: start: 20101118
  27. SHAKUYAKUKANZOUTOU [Concomitant]
     Indication: PAIN
     Route: 048
  28. STICK ZENOL [Concomitant]
     Indication: PAIN
  29. NEO VITACAIN [Concomitant]
     Route: 065
     Dates: start: 20100616, end: 20100616
  30. NEO VITACAIN [Concomitant]
     Route: 065
     Dates: start: 20100707, end: 20100707
  31. KAMAG G [Concomitant]
     Indication: PRODUCT USED FOR UNKNOWN INDICATION
     Route: 048
  32. BESACOLIN [Concomitant]
     Indication: PRODUCT USED FOR UNKNOWN INDICATION
     Route: 048

REACTIONS (3)
  - ANGINA PECTORIS [None]
  - GASTRIC ULCER [None]
  - CHEST DISCOMFORT [None]
